FAERS Safety Report 4424627-6 (Version None)
Quarter: 2004Q3

REPORT INFORMATION
  Report Type: 
  Country: None (occurrence: None)
  Receive Date: 20040809
  Receipt Date: 20040726
  Transmission Date: 20050211
  Serious: Yes (Hospitalization)
  Sender: FDA-Public Use
  Company Number: US-JNJFOC-20040706870

PATIENT
  Age: 73 Year
  Weight: 68.0396 kg

DRUGS (6)
  1. INFLIXIMAB (INFLIXIMAB, RECOMBINANT) LYOPHILIZED POWDER [Suspect]
     Indication: RHEUMATOID ARTHRITIS
     Dosage: EVERY 8 WEEKS
     Dates: start: 20030211, end: 20031001
  2. PREVACID [Concomitant]
  3. TYLENOL [Concomitant]
  4. BEXTRA [Concomitant]
  5. FOLIC ACID [Concomitant]
  6. MULTI-VITAMIN [Concomitant]

REACTIONS (2)
  - KIDNEY INFECTION [None]
  - SEPSIS [None]
